FAERS Safety Report 8048218-3 (Version None)
Quarter: 2012Q1

REPORT INFORMATION
  Report Type: 
  Country: None (occurrence: None)
  Receive Date: 20120113
  Receipt Date: 20120113
  Transmission Date: 20120608
  Serious: No
  Sender: FDA-Public Use
  Company Number: None

PATIENT
  Age: 59 Year
  Sex: Male

DRUGS (6)
  1. NIASPAN [Concomitant]
  2. SEROQUEL [Suspect]
     Dates: start: 20100525, end: 20100601
  3. CYMBALTA [Concomitant]
  4. ADVAIR DISKUS 100/50 [Concomitant]
  5. SPIRIVA [Concomitant]
  6. ANTARA (MICRONIZED) [Concomitant]

REACTIONS (8)
  - BILE DUCT STONE [None]
  - CLOSTRIDIUM DIFFICILE SEPSIS [None]
  - HEPATITIS CHOLESTATIC [None]
  - BILE DUCT OBSTRUCTION [None]
  - HEPATIC FIBROSIS [None]
  - STAPHYLOCOCCAL SEPSIS [None]
  - CHOLECYSTITIS ACUTE [None]
  - NEUROLEPTIC MALIGNANT SYNDROME [None]
